FAERS Safety Report 12543350 (Version 1)
Quarter: 2016Q3

REPORT INFORMATION
  Report Type: Report from Study
  Country: US (occurrence: US)
  Receive Date: 20160711
  Receipt Date: 20160711
  Transmission Date: 20161109
  Serious: Yes (Hospitalization)
  Sender: FDA-Public Use
  Company Number: US-ROCHE-1789372

PATIENT
  Age: 50 Year
  Sex: Female
  Weight: 115 kg

DRUGS (6)
  1. CARBOPLATIN. [Suspect]
     Active Substance: CARBOPLATIN
     Indication: HER-2 POSITIVE BREAST CANCER
     Dosage: AUC=6 MG/ML/MIN, OVER 30-60 MIN ON DAY 1, (CYCLE 1, CYCLE 2-6), LAST DOSE PRIOR TO SAE 18/FEB/2016
     Route: 042
     Dates: start: 20160105
  2. TRASTUZUMAB [Suspect]
     Active Substance: TRASTUZUMAB
     Indication: HER-2 POSITIVE BREAST CANCER
     Dosage: OVER 90 MIN ON DAY 1 (CYCLE 1), LAST DOSE PRIOR TO SAE 18/FEB/2016
     Route: 042
     Dates: start: 20160105
  3. DOCETAXEL. [Suspect]
     Active Substance: DOCETAXEL
     Indication: HER-2 POSITIVE BREAST CANCER
     Dosage: OVER 60 MIN ON DAY 1 (CYCLE 1, CYCLE 2-6), LAST DOSE PRIOR TO SAE 18/FEB/2016
     Route: 042
     Dates: start: 20160105
  4. PERTUZUMAB [Suspect]
     Active Substance: PERTUZUMAB
     Dosage: OVER 30-60 MIN ON DAY 1 (CYCLE 2-6)
     Route: 042
  5. TRASTUZUMAB [Suspect]
     Active Substance: TRASTUZUMAB
     Dosage: OVER 30-60 MIN ON DAY 1,  (CYCLE 2-6)
     Route: 042
  6. PERTUZUMAB [Suspect]
     Active Substance: PERTUZUMAB
     Indication: HER-2 POSITIVE BREAST CANCER
     Dosage: OVER 60 MIN ON DAY 1, (CYCLE 1), LAST DOSE PRIOR TO SAE 18/FEB/2016
     Route: 042
     Dates: start: 20160105

REACTIONS (1)
  - Dehydration [Recovered/Resolved]

NARRATIVE: CASE EVENT DATE: 20160222
